FAERS Safety Report 25735295 (Version 1)
Quarter: 2025Q3

REPORT INFORMATION
  Report Type: Spontaneous
  Country: US (occurrence: None)
  Receive Date: 20250827
  Receipt Date: 20250827
  Transmission Date: 20251021
  Serious: Yes (Other)
  Sender: FDA-CTU
  Company Number: None

PATIENT
  Age: 10 Year
  Sex: Female
  Weight: 27 kg

DRUGS (1)
  1. DUPIXENT [Suspect]
     Active Substance: DUPILUMAB
     Indication: Eczema
     Route: 050
     Dates: start: 20250611, end: 20250819

REACTIONS (6)
  - Rash [None]
  - Rash [None]
  - Rash [None]
  - Vasculitis [None]
  - Alanine aminotransferase increased [None]
  - Aspartate aminotransferase increased [None]

NARRATIVE: CASE EVENT DATE: 20250811
